FAERS Safety Report 7578315-8 (Version None)
Quarter: 2011Q2

REPORT INFORMATION
  Report Type: 
  Country: None (occurrence: None)
  Receive Date: 20110628
  Receipt Date: 20110531
  Transmission Date: 20111010
  Serious: Yes (Hospitalization)
  Sender: FDA-Public Use
  Company Number: US-BAYER-2011-024899

PATIENT
  Age: 30 Year
  Sex: Female
  Weight: 73 kg

DRUGS (8)
  1. YAZ [Suspect]
     Indication: CONTRACEPTION
     Dosage: UNK
     Dates: start: 20070703, end: 20090904
  2. YAZ [Suspect]
     Indication: MIGRAINE
  3. SOLU-MEDROL [Concomitant]
  4. FLAGYL [Concomitant]
  5. PROTONIX [Concomitant]
  6. PREDNISONE [Concomitant]
     Dosage: 40 MG, QD
  7. ASACOL [Concomitant]
  8. LEVAQUIN [Concomitant]

REACTIONS (3)
  - CHOLELITHIASIS [None]
  - CHOLECYSTITIS CHRONIC [None]
  - PANCREATITIS [None]
